FAERS Safety Report 9194501 (Version 1)
Quarter: 2013Q1

REPORT INFORMATION
  Report Type: Spontaneous
  Country: US (occurrence: US)
  Receive Date: 20130327
  Receipt Date: 20130327
  Transmission Date: 20140127
  Serious: No
  Sender: FDA-Public Use
  Company Number: US-ALLERGAN-1206798US

PATIENT
  Age: 68 Year
  Sex: Female

DRUGS (6)
  1. LATISSE 0.03% [Suspect]
     Indication: GROWTH OF EYELASHES
     Dosage: 2 GTT, QHS
     Route: 061
     Dates: start: 2009
  2. ARTIFICIAL TEARS                   /00445101/ [Concomitant]
     Indication: EYE LUBRICATION THERAPY
  3. MANY TYPES OF LUBES [Concomitant]
     Indication: EYE LUBRICATION THERAPY
  4. BEPREVE [Concomitant]
     Indication: HYPERSENSITIVITY
  5. EYE WASHES [Concomitant]
     Indication: DRY EYE
  6. PURALUBE                           /00582501/ [Concomitant]
     Indication: DRY EYE

REACTIONS (5)
  - Inappropriate schedule of drug administration [Unknown]
  - Eyelid irritation [Not Recovered/Not Resolved]
  - Eyelids pruritus [Not Recovered/Not Resolved]
  - Eyelid irritation [Not Recovered/Not Resolved]
  - Erythema of eyelid [Not Recovered/Not Resolved]
